APPROVED DRUG PRODUCT: FINASTERIDE
Active Ingredient: FINASTERIDE
Strength: 5MG
Dosage Form/Route: TABLET;ORAL
Application: A090507 | Product #001 | TE Code: AB
Applicant: SUN PHARMACEUTICAL INDUSTRIES LTD
Approved: Aug 16, 2011 | RLD: No | RS: No | Type: RX